FAERS Safety Report 7369577-0 (Version None)
Quarter: 2011Q1

REPORT INFORMATION
  Report Type: 
  Country: None (occurrence: None)
  Receive Date: 20110323
  Receipt Date: 20110317
  Transmission Date: 20110831
  Serious: Yes (Death, Other)
  Sender: FDA-Public Use
  Company Number: US-PFIZER INC-2011060073

PATIENT
  Age: 20 Year
  Sex: Male

DRUGS (2)
  1. XANAX [Suspect]
     Indication: PRODUCT USED FOR UNKNOWN INDICATION
  2. OXYMORPHONE HYDROCHLORIDE [Suspect]
     Indication: ARTHRALGIA
     Dosage: 30 MG, UNK

REACTIONS (3)
  - DEATH [None]
  - DRUG ABUSE [None]
  - OVERDOSE [None]
